FAERS Safety Report 7360043-5 (Version None)
Quarter: 2011Q1

REPORT INFORMATION
  Report Type: 
  Country: None (occurrence: None)
  Receive Date: 20110317
  Receipt Date: 20081015
  Transmission Date: 20110831
  Serious: Yes (Hospitalization, Other)
  Sender: FDA-Public Use
  Company Number: GB-MYLANLABS-2011S1005383

PATIENT
  Sex: Male

DRUGS (10)
  1. CYSTAGON [Suspect]
     Indication: CYSTINOSIS
  2. ATENOLOL [Concomitant]
  3. RENAGEL [Concomitant]
  4. ALFACALCIDOL [Concomitant]
  5. SANDOCAL /01767901/ [Concomitant]
  6. ERYTHROPOETIN [Concomitant]
  7. CYSTAGON [Suspect]
  8. THYROXINE [Concomitant]
  9. NIFEDIPINE [Concomitant]
  10. CARBAMAZEPINE [Concomitant]

REACTIONS (9)
  - DYSPNOEA [None]
  - FLUID OVERLOAD [None]
  - OBSTRUCTIVE AIRWAYS DISORDER [None]
  - GRAND MAL CONVULSION [None]
  - HEPATITIS C [None]
  - HYPERCALCAEMIA [None]
  - PNEUMONIA [None]
  - PLEURITIC PAIN [None]
  - PYREXIA [None]
